FAERS Safety Report 6759949-7 (Version None)
Quarter: 2010Q2

REPORT INFORMATION
  Report Type: 
  Country: None (occurrence: None)
  Receive Date: 20100608
  Receipt Date: 20100527
  Transmission Date: 20101027
  Serious: Yes (Other)
  Sender: FDA-Public Use
  Company Number: US-TYCO HEALTHCARE/MALLINCKRODT-T201001385

PATIENT

DRUGS (9)
  1. OPTIMARK [Suspect]
     Dosage: UNK
     Dates: start: 20040127, end: 20040127
  2. OPTIMARK [Suspect]
     Dosage: UNK
     Dates: start: 20040204, end: 20040204
  3. OPTIMARK [Suspect]
     Dosage: UNK
     Dates: start: 20040325, end: 20040325
  4. OPTIMARK [Suspect]
     Dosage: UNK
     Dates: start: 20040421, end: 20040421
  5. OPTIMARK [Suspect]
     Dosage: UNK
     Dates: start: 20040916, end: 20040916
  6. OPTIMARK [Suspect]
     Dosage: UNK
     Dates: start: 20041019, end: 20041019
  7. OPTIMARK [Suspect]
     Dosage: UNK
     Dates: start: 20041124, end: 20041124
  8. OPTIMARK [Suspect]
     Dosage: UNK
     Dates: start: 20060309, end: 20060309
  9. OMNISCAN [Suspect]
     Dosage: UNK
     Dates: start: 20040524, end: 20040524

REACTIONS (1)
  - NEPHROGENIC SYSTEMIC FIBROSIS [None]
